FAERS Safety Report 18691826 (Version 2)
Quarter: 2021Q1

REPORT INFORMATION
  Report Type: Spontaneous
  Country: GB (occurrence: GB)
  Receive Date: 20210102
  Receipt Date: 20210116
  Transmission Date: 20210419
  Serious: Yes (Other)
  Sender: FDA-Public Use
  Company Number: GB-AUROBINDO-AUR-APL-2020-063676

PATIENT
  Age: 31 Year
  Sex: Male

DRUGS (12)
  1. ATENOLOL. [Concomitant]
     Active Substance: ATENOLOL
     Indication: TACHYCARDIA
     Dosage: 50 MILLIGRAM, ONCE A DAY
     Route: 048
     Dates: start: 2015
  2. SERTRALINE [Suspect]
     Active Substance: SERTRALINE HYDROCHLORIDE
     Indication: DEPRESSIVE SYMPTOM
     Dosage: 100 MILLIGRAM, ONCE A DAY
     Route: 048
     Dates: start: 2015
  3. CLOZARIL [Suspect]
     Active Substance: CLOZAPINE
     Dosage: REDUCED HIS DOSE OVERALL BY 20 PERCENT
     Route: 048
     Dates: start: 20201212, end: 20201214
  4. AMISULPRIDE [Suspect]
     Active Substance: AMISULPRIDE
     Dosage: 300 MILLIGRAM, TWO TIMES A DAY
     Route: 048
     Dates: start: 202012
  5. CLOZARIL [Suspect]
     Active Substance: CLOZAPINE
     Indication: SCHIZOPHRENIA
     Dosage: 650 MILLIGRAM, ONCE A DAY
     Route: 048
     Dates: start: 20151202, end: 20201210
  6. COLECALCIFEROL [Concomitant]
     Active Substance: CHOLECALCIFEROL
     Indication: COVID-19
     Dosage: 400 UNITS DAILY
     Route: 048
     Dates: start: 202005
  7. OMEPRAZOLE. [Concomitant]
     Active Substance: OMEPRAZOLE
     Indication: GASTROOESOPHAGEAL REFLUX DISEASE
     Dosage: 20 MILLIGRAM, ONCE A DAY
     Route: 048
     Dates: start: 2016
  8. AMISULPRIDE [Suspect]
     Active Substance: AMISULPRIDE
     Indication: SCHIZOPHRENIA
     Dosage: 200 MILLIGRAM, TWO TIMES A DAY
     Route: 048
  9. CELECOXIB. [Concomitant]
     Active Substance: CELECOXIB
     Indication: ARTHRALGIA
     Dosage: 100 MG OD PLUS 100 MG OD PRN
     Route: 048
     Dates: start: 2019
  10. ATROPINE. [Concomitant]
     Active Substance: ATROPINE
     Indication: SALIVARY HYPERSECRETION
     Dosage: ONE DROP IN 10ML
     Route: 048
     Dates: start: 2019
  11. AMISULPRIDE [Suspect]
     Active Substance: AMISULPRIDE
     Dosage: 400 MG PLUS UP TO 100 MG TDS PRN
     Route: 048
     Dates: start: 2018
  12. MOVICOL [Concomitant]
     Active Substance: POLYETHYLENE GLYCOL 3350\POTASSIUM CHLORIDE\SODIUM BICARBONATE\SODIUM CHLORIDE
     Indication: CONSTIPATION
     Dosage: ONE SACHET UP TO TDS PRN
     Route: 048
     Dates: start: 2015

REACTIONS (12)
  - Blood glucose increased [Recovering/Resolving]
  - COVID-19 [Recovered/Resolved]
  - Hypertension [Unknown]
  - Platelet count increased [Unknown]
  - Neutropenia [Recovered/Resolved]
  - Tachycardia [Unknown]
  - Alanine aminotransferase increased [Recovering/Resolving]
  - Leukopenia [Recovered/Resolved]
  - Malaise [Unknown]
  - Blood creatine phosphokinase increased [Recovered/Resolved]
  - Rebound psychosis [Not Recovered/Not Resolved]
  - Eosinophil count decreased [Unknown]

NARRATIVE: CASE EVENT DATE: 20201214
